FAERS Safety Report 10169196 (Version 1)
Quarter: 2014Q2

REPORT INFORMATION
  Report Type: Spontaneous
  Country: US (occurrence: None)
  Receive Date: 20140512
  Receipt Date: 20140512
  Transmission Date: 20141212
  Serious: No
  Sender: FDA-Public Use
  Company Number: None

PATIENT
  Age: 58 Year
  Sex: Male
  Weight: 120.8 kg

DRUGS (3)
  1. NAPROXEN [Suspect]
     Indication: PAIN
     Route: 048
     Dates: start: 20140317, end: 20140321
  2. ASPIRIN [Suspect]
     Indication: PROPHYLAXIS
     Route: 048
     Dates: start: 20140303, end: 20140321
  3. ASPIRIN [Suspect]
     Indication: CARDIOVASCULAR DISORDER
     Route: 048
     Dates: start: 20140303, end: 20140321

REACTIONS (2)
  - Diarrhoea [None]
  - Gastric haemorrhage [None]
